FAERS Safety Report 9052748 (Version 1)
Quarter: 2013Q1

REPORT INFORMATION
  Report Type: Report from Study
  Country: FR (occurrence: FR)
  Receive Date: 20130207
  Receipt Date: 20130207
  Transmission Date: 20140127
  Serious: Yes (Hospitalization)
  Sender: FDA-Public Use
  Company Number: FR-ROCHE-1187942

PATIENT
  Age: 66 None
  Sex: 0
  Weight: 72 kg

DRUGS (4)
  1. MYCOPHENOLATE MOFETIL [Suspect]
     Indication: RENAL TRANSPLANT
     Route: 048
     Dates: start: 20121019
  2. CERTICAN [Suspect]
     Indication: RENAL TRANSPLANT
     Route: 048
     Dates: start: 20130104, end: 20130202
  3. CORTANCYL [Suspect]
     Indication: RENAL TRANSPLANT
     Route: 048
     Dates: start: 20121020
  4. ADVAGRAF [Concomitant]
     Route: 065

REACTIONS (1)
  - Transplant rejection [Not Recovered/Not Resolved]
